FAERS Safety Report 14655628 (Version 2)
Quarter: 2018Q1

REPORT INFORMATION
  Report Type: Spontaneous
  Country: PT (occurrence: PT)
  Receive Date: 20180319
  Receipt Date: 20180322
  Transmission Date: 20180509
  Serious: Yes (Other)
  Sender: FDA-Public Use
  Company Number: PT-TEVA-2018-PT-868802

PATIENT
  Age: 18 Month
  Sex: Female

DRUGS (8)
  1. ZINC OXIDE. [Suspect]
     Active Substance: ZINC OXIDE
     Indication: CONDITION AGGRAVATED
  2. ZINC OXIDE. [Suspect]
     Active Substance: ZINC OXIDE
     Indication: DERMATITIS DIAPER
     Route: 061
  3. BETAMETHASONE VALERATE. [Suspect]
     Active Substance: BETAMETHASONE VALERATE
     Indication: CONDITION AGGRAVATED
  4. HYDROCORTISONE BUTYRATE. [Suspect]
     Active Substance: HYDROCORTISONE BUTYRATE
     Indication: DERMATITIS DIAPER
     Route: 061
  5. HYDROCORTISONE BUTYRATE. [Suspect]
     Active Substance: HYDROCORTISONE BUTYRATE
     Indication: CONDITION AGGRAVATED
  6. CLOTRIMAZOLE. [Suspect]
     Active Substance: CLOTRIMAZOLE
     Indication: CONDITION AGGRAVATED
  7. BETAMETHASONE VALERATE. [Suspect]
     Active Substance: BETAMETHASONE VALERATE
     Indication: DERMATITIS DIAPER
     Route: 061
  8. CLOTRIMAZOLE. [Suspect]
     Active Substance: CLOTRIMAZOLE
     Indication: DERMATITIS DIAPER
     Route: 061

REACTIONS (2)
  - Granuloma skin [Recovered/Resolved]
  - Nodular rash [Recovered/Resolved]
